FAERS Safety Report 8230946-8 (Version None)
Quarter: 2012Q1

REPORT INFORMATION
  Report Type: 
  Country: None (occurrence: None)
  Receive Date: 20120323
  Receipt Date: 20120313
  Transmission Date: 20120608
  Serious: Yes (Hospitalization)
  Sender: FDA-Public Use
  Company Number: FI-ELI_LILLY_AND_COMPANY-FI201202007475

PATIENT
  Sex: Male

DRUGS (8)
  1. LYRICA [Concomitant]
     Dosage: 450 MG, QD
  2. CREON                              /00014701/ [Concomitant]
     Dosage: 60000 DF, QD
  3. MOVIPREP [Concomitant]
     Dosage: 1 DF, BID
     Route: 048
  4. NORSPAN                            /00444001/ [Concomitant]
     Dosage: 10 UG, OTHER
  5. LEVOLAC [Concomitant]
     Dosage: 20 ML, QD
  6. CYMBALTA [Suspect]
     Indication: DEPRESSION
     Dosage: 60 MG, QD
  7. OMEPRAZOLE [Concomitant]
     Dosage: 40 MG, QD
  8. ZOPINOX [Concomitant]
     Dosage: 7.5 MG, QD

REACTIONS (1)
  - ATRIOVENTRICULAR BLOCK SECOND DEGREE [None]
